FAERS Safety Report 22889379 (Version 12)
Quarter: 2025Q4

REPORT INFORMATION
  Report Type: Spontaneous
  Country: IN (occurrence: IN)
  Receive Date: 20230831
  Receipt Date: 20251103
  Transmission Date: 20260117
  Serious: Yes (Other)
  Sender: PFIZER
  Company Number: IN-PFIZER INC-2017157177

PATIENT
  Age: 44 Year
  Sex: Female
  Weight: 73 kg

DRUGS (10)
  1. PALBOCICLIB [Suspect]
     Active Substance: PALBOCICLIB
     Indication: Breast cancer metastatic
     Dosage: 125 MG, CYCLIC (ONCE A DAY)
     Route: 048
     Dates: start: 20170210, end: 2017
  2. PALBOCICLIB [Suspect]
     Active Substance: PALBOCICLIB
     Dosage: 125 MG, CYCLIC (DAILY FOR 21 DAYS AND THEN 7 DAYS OFF, FOR 3 MONTHS)
     Route: 048
     Dates: start: 20170407
  3. PALBOCICLIB [Suspect]
     Active Substance: PALBOCICLIB
     Dosage: 125 MG, CYCLIC (ONCE DAILY)
     Route: 048
     Dates: start: 20210609
  4. PALBOCICLIB [Suspect]
     Active Substance: PALBOCICLIB
     Indication: Breast cancer metastatic
     Dosage: 125 MG, CYCLIC(125MG ONCE DAILY FOR 21 DAYS AND THEN 7 DAYS REST: FOR 3 MONTHS )
     Route: 048
  5. CALCIMAX FORTE [Concomitant]
     Dosage: 1 G, DAILY (FOR 1 YEAR)
  6. FEMARA [Concomitant]
     Active Substance: LETROZOLE
     Dosage: 2.5 MG, DAILY (FOR 5 YEARS)
     Dates: start: 20170210
  7. LETROZOLE [Concomitant]
     Active Substance: LETROZOLE
     Dosage: 2.5 MG, DAILY
  8. ZOLEDRONIC ACID [Concomitant]
     Active Substance: ZOLEDRONIC ACID
     Dosage: 4 MG (4 MG IN 50ML SALINE OVER 20MIN ONCE 3 MONTHS)
     Route: 042
     Dates: start: 20170902
  9. ZOLEDRONIC ACID [Concomitant]
     Active Substance: ZOLEDRONIC ACID
     Dosage: 4 MG
     Route: 042
     Dates: start: 202301
  10. ZOLEDRONIC ACID [Concomitant]
     Active Substance: ZOLEDRONIC ACID
     Dosage: 4 MG, MONTHLY (4 MG IN 50ML SALINE IV OVER 20 MIN ONCE A MONTH FOR 2 YEARS)
     Route: 042
     Dates: start: 20170209

REACTIONS (12)
  - Cataract [Unknown]
  - Breast cancer metastatic [Unknown]
  - Malignant neoplasm progression [Unknown]
  - Mouth ulceration [Recovering/Resolving]
  - Pyrexia [Unknown]
  - White blood cell count decreased [Unknown]
  - Haemoglobin decreased [Unknown]
  - Back pain [Unknown]
  - Bone pain [Unknown]
  - Asthenia [Unknown]
  - Weight increased [Recovering/Resolving]
  - Pain [Unknown]

NARRATIVE: CASE EVENT DATE: 20170101
